FAERS Safety Report 6603558-7 (Version None)
Quarter: 2010Q1

REPORT INFORMATION
  Report Type: 
  Country: None (occurrence: None)
  Receive Date: 20100226
  Receipt Date: 20091222
  Transmission Date: 20100710
  Serious: No
  Sender: FDA-Public Use
  Company Number: A0810607A

PATIENT
  Sex: Female

DRUGS (2)
  1. VALTREX [Suspect]
     Indication: GENITAL HERPES
     Dosage: 500MG TWICE PER DAY
     Dates: start: 20080101, end: 20091029
  2. FAMVIR [Concomitant]
     Indication: DRUG USE FOR UNKNOWN INDICATION
     Dosage: 500MG UNKNOWN
     Route: 048
     Dates: start: 20091022

REACTIONS (5)
  - BURNING SENSATION [None]
  - DRUG INEFFECTIVE [None]
  - OVERDOSE [None]
  - PAIN [None]
  - SKIN LESION [None]
